FAERS Safety Report 5217255-6 (Version None)
Quarter: 2006Q4

REPORT INFORMATION
  Report Type: 
  Country: None (occurrence: None)
  Receive Date: 20061130
  Receipt Date: 20060627
  Transmission Date: 20070319
  Serious: Yes (Other)
  Sender: FDA-Public Use
  Company Number: US_0509121879

PATIENT
  Sex: Male
  Weight: 111.1 kg

DRUGS (6)
  1. ZYPREXA [Suspect]
     Dosage: SEE IMAGE
     Dates: start: 19970101, end: 20050101
  2. PROZAC [Concomitant]
  3. TRAZODONE HCL [Concomitant]
  4. DIAZEPAM [Concomitant]
  5. RANITIDINE [Concomitant]
  6. THORAZINE [Concomitant]

REACTIONS (8)
  - DIABETES MELLITUS [None]
  - HYPERPHAGIA [None]
  - HYPERTENSION [None]
  - OBESITY [None]
  - PANCREATITIS [None]
  - POLYDIPSIA [None]
  - POLYURIA [None]
  - VISION BLURRED [None]
